FAERS Safety Report 11211545 (Version 1)
Quarter: 2015Q2

REPORT INFORMATION
  Report Type: Spontaneous
  Country: GB (occurrence: None)
  Receive Date: 20150619
  Receipt Date: 20150619
  Transmission Date: 20150821
  Serious: Yes (Life-Threatening)
  Sender: FDA-Public Use
  Company Number: GB-H14001-15-00942

PATIENT
  Age: 67 Year
  Sex: Male

DRUGS (3)
  1. RIVAROXABAN (RIVAROXABAN) (UNKNOWN) (RIVAROXABAN) [Concomitant]
  2. VANCOMYCIN (VANCOMYCIN) (UNKNOWN) (VANCOMYCIN) [Suspect]
     Active Substance: VANCOMYCIN
     Indication: PNEUMONIA
     Dosage: (UNKNOWN), INTRAVENOUS (NOT OTHERWISE SPECIFIED)
     Route: 042
  3. GENTAMICIN (GENTAMICIN) (UNKNOWN) (GENTAMICIN) [Concomitant]

REACTIONS (3)
  - Haemodynamic instability [None]
  - Haematuria [None]
  - Thrombocytopenia [None]
